FAERS Safety Report 8076378-7 (Version None)
Quarter: 2012Q1

REPORT INFORMATION
  Report Type: 
  Country: None (occurrence: None)
  Receive Date: 20120127
  Receipt Date: 20120127
  Transmission Date: 20120608
  Serious: No
  Sender: FDA-Public Use
  Company Number: None

PATIENT
  Age: 73 Year
  Sex: Female
  Weight: 106.59 kg

DRUGS (1)
  1. SIMVASTATIN (ZOCOR) [Suspect]
     Indication: BLOOD CHOLESTEROL INCREASED
     Dosage: 20 MG.
     Route: 048
     Dates: start: 19920101, end: 20120110

REACTIONS (3)
  - MUSCULAR WEAKNESS [None]
  - ARTHRALGIA [None]
  - MYALGIA [None]
